FAERS Safety Report 8411576-1 (Version None)
Quarter: 2012Q2

REPORT INFORMATION
  Report Type: 
  Country: None (occurrence: None)
  Receive Date: 20120605
  Receipt Date: 20120509
  Transmission Date: 20120825
  Serious: No
  Sender: FDA-Public Use
  Company Number: US-AMGEN-USASP2012029490

PATIENT
  Age: 69 Year
  Sex: Male

DRUGS (1)
  1. ENBREL [Suspect]
     Indication: ANKYLOSING SPONDYLITIS
     Dosage: 50 MG, QWK
     Dates: start: 20120401, end: 20120503

REACTIONS (6)
  - OEDEMA PERIPHERAL [None]
  - SKIN SWELLING [None]
  - FATIGUE [None]
  - DYSPNOEA [None]
  - SKIN INDURATION [None]
  - ERYTHEMA [None]
